FAERS Safety Report 4543477-3 (Version None)
Quarter: 2005Q1

REPORT INFORMATION
  Report Type: 
  Country: None (occurrence: None)
  Receive Date: 20050103
  Receipt Date: 20040423
  Transmission Date: 20050727
  Serious: Yes (Hospitalization)
  Sender: FDA-Public Use
  Company Number: US-GLAXOSMITHKLINE-A0520345A

PATIENT
  Age: 47 Year
  Sex: Female

DRUGS (6)
  1. BC HEADACHE POWDER [Suspect]
     Indication: HEADACHE
     Route: 048
     Dates: start: 19990412
  2. ALKA SELTZER PLUS [Suspect]
     Route: 048
  3. ROBITUSSIN [Suspect]
     Route: 048
     Dates: start: 19990401
  4. XENADRINE [Suspect]
     Indication: WEIGHT CONTROL
     Route: 048
     Dates: start: 19990301
  5. CONTAC 12 HOUR [Concomitant]
     Route: 048
  6. PROZAC [Concomitant]
     Indication: DEPRESSION
     Route: 048
     Dates: start: 19930101

REACTIONS (19)
  - ACTIVITIES OF DAILY LIVING IMPAIRED [None]
  - APHASIA [None]
  - APRAXIA [None]
  - ASBESTOSIS [None]
  - BLOOD PRESSURE INCREASED [None]
  - CEREBRAL HAEMORRHAGE [None]
  - CEREBROVASCULAR ACCIDENT [None]
  - DEPRESSION [None]
  - DYSARTHRIA [None]
  - DYSPHAGIA [None]
  - HEADACHE [None]
  - HEMIPARESIS [None]
  - HYPERREFLEXIA [None]
  - HYPERTENSION [None]
  - HYPOAESTHESIA [None]
  - INJURY [None]
  - MENTAL IMPAIRMENT [None]
  - NERVE INJURY [None]
  - PARAESTHESIA [None]
